FAERS Safety Report 5325527-X (Version None)
Quarter: 2007Q2

REPORT INFORMATION
  Report Type: 
  Country: None (occurrence: None)
  Receive Date: 20070515
  Receipt Date: 20070503
  Transmission Date: 20071010
  Serious: Yes (Other)
  Sender: FDA-Public Use
  Company Number: US-PFIZER INC-2007036131

PATIENT
  Sex: Female
  Weight: 71.363 kg

DRUGS (3)
  1. LYRICA [Suspect]
     Indication: SCIATICA
     Dates: start: 20060901, end: 20070502
  2. LYRICA [Suspect]
     Indication: NEURALGIA
  3. BACLOFEN [Concomitant]

REACTIONS (7)
  - ACTIVITIES OF DAILY LIVING IMPAIRED [None]
  - ALOPECIA [None]
  - FATIGUE [None]
  - MALAISE [None]
  - NAUSEA [None]
  - OEDEMA PERIPHERAL [None]
  - WEIGHT INCREASED [None]
